FAERS Safety Report 25976209 (Version 1)
Quarter: 2025Q4

REPORT INFORMATION
  Report Type: Report from Study
  Country: EU (occurrence: EU)
  Receive Date: 20251029
  Receipt Date: 20251029
  Transmission Date: 20260118
  Serious: Yes (Death, Other)
  Sender: VERITY PHARMACEUTICALS INC.
  Company Number: EU-VER-202500094

PATIENT
  Age: 79 Year
  Sex: Male

DRUGS (1)
  1. TRIPTORELIN PAMOATE [Suspect]
     Active Substance: TRIPTORELIN PAMOATE
     Indication: Prostate cancer
     Dosage: 22.5 MG DOSE- 1 IN 6 MONTHS
     Route: 030

REACTIONS (1)
  - Death [Fatal]

NARRATIVE: CASE EVENT DATE: 20251011
